FAERS Safety Report 15559107 (Version 1)
Quarter: 2018Q4

REPORT INFORMATION
  Report Type: Spontaneous
  Country: GB (occurrence: GB)
  Receive Date: 20181029
  Receipt Date: 20181029
  Transmission Date: 20190205
  Serious: Yes (Hospitalization)
  Sender: FDA-Public Use
  Company Number: GB-TEVA-2018-GB-968466

PATIENT
  Age: 87 Year
  Sex: Male

DRUGS (2)
  1. FINASTERIDE. [Concomitant]
     Active Substance: FINASTERIDE
     Route: 065
  2. WARFARIN [Suspect]
     Active Substance: WARFARIN
     Route: 048

REACTIONS (2)
  - Purpura [Unknown]
  - Hypersensitivity vasculitis [Not Recovered/Not Resolved]

NARRATIVE: CASE EVENT DATE: 20180726
